FAERS Safety Report 23058088 (Version 1)
Quarter: 2023Q4

REPORT INFORMATION
  Report Type: Spontaneous
  Country: CA (occurrence: CA)
  Receive Date: 20231012
  Receipt Date: 20231012
  Transmission Date: 20240109
  Serious: Yes (Hospitalization, Other)
  Sender: FDA-Public Use
  Company Number: CA-drreddys-SPO/CAN/23/0179351

PATIENT
  Age: 64 Year
  Sex: Male

DRUGS (7)
  1. BORTEZOMIB [Suspect]
     Active Substance: BORTEZOMIB
     Indication: Chemotherapy
  2. BORTEZOMIB [Suspect]
     Active Substance: BORTEZOMIB
  3. LENALIDOMIDE [Suspect]
     Active Substance: LENALIDOMIDE
     Indication: Plasma cell myeloma
     Route: 048
  4. LENALIDOMIDE [Suspect]
     Active Substance: LENALIDOMIDE
     Route: 048
  5. CYCLOPHOSPHAMIDE [Suspect]
     Active Substance: CYCLOPHOSPHAMIDE
     Indication: Chemotherapy
  6. DEXAMETHASONE [Suspect]
     Active Substance: DEXAMETHASONE
     Indication: Chemotherapy
  7. DEXAMETHASONE [Suspect]
     Active Substance: DEXAMETHASONE

REACTIONS (17)
  - Clostridium difficile colitis [Recovering/Resolving]
  - Gingivitis [Recovering/Resolving]
  - Oropharyngeal candidiasis [Recovering/Resolving]
  - Haematotoxicity [Recovering/Resolving]
  - Toxicity to various agents [Recovering/Resolving]
  - Guillain-Barre syndrome [Recovering/Resolving]
  - Pancytopenia [Recovering/Resolving]
  - Periodontitis [Recovering/Resolving]
  - Anaemia [Recovering/Resolving]
  - Dehydration [Recovering/Resolving]
  - Dysphagia [Recovering/Resolving]
  - Febrile neutropenia [Recovering/Resolving]
  - Neuropathy peripheral [Recovering/Resolving]
  - Neutropenia [Recovering/Resolving]
  - Pneumonia [Recovering/Resolving]
  - Sepsis [Recovering/Resolving]
  - Thrombocytopenia [Recovering/Resolving]
